FAERS Safety Report 9575424 (Version 1)
Quarter: 2013Q4

REPORT INFORMATION
  Report Type: Spontaneous
  Country: US (occurrence: US)
  Receive Date: 20131001
  Receipt Date: 20131001
  Transmission Date: 20140711
  Serious: No
  Sender: FDA-Public Use
  Company Number: US-AMGEN-USASP2013002132

PATIENT
  Sex: Male
  Weight: 70.3 kg

DRUGS (14)
  1. ENBREL [Suspect]
     Indication: RHEUMATOID ARTHRITIS
     Dosage: 50 MG, QWK
     Route: 058
  2. ZOCOR [Concomitant]
     Dosage: 5 MG, UNK
  3. SERTRALINE [Concomitant]
     Dosage: 25 MG, UNK
  4. ALLEGRA [Concomitant]
     Dosage: 30 MG, UNK
  5. TRAMADOL HCL [Concomitant]
     Dosage: 50 MG, UNK
  6. ATENOLOL [Concomitant]
     Dosage: 25 MG, UNK
  7. RANITIDINE [Concomitant]
     Dosage: 150 MG, UNK
  8. AMITRIPTYLIN [Concomitant]
     Dosage: 10 MG, UNK
  9. VITAMIN C                          /00008001/ [Concomitant]
     Dosage: 500 MG, UNK
  10. VITAMIN B12                        /00056201/ [Concomitant]
     Dosage: 1000 CR, UNK
  11. MULTIVITAMINS, PLAIN [Concomitant]
     Dosage: UNK
  12. CALCIUM + VIT D [Concomitant]
     Dosage: UNK
  13. VITAMIN D                          /00107901/ [Concomitant]
     Dosage: 400 UNIT, UNK
  14. ASPIRIN LOW [Concomitant]
     Dosage: 81 MG, UNK

REACTIONS (1)
  - Arthritis [Unknown]
